FAERS Safety Report 10296768 (Version 1)
Quarter: 2014Q3

REPORT INFORMATION
  Report Type: Other
  Country: ES (occurrence: ES)
  Receive Date: 20140710
  Receipt Date: 20140710
  Transmission Date: 20150326
  Serious: Yes (Hospitalization)
  Sender: FDA-Public Use
  Company Number: ES-BRISTOL-MYERS SQUIBB COMPANY-21174958

PATIENT
  Age: 51 Year

DRUGS (3)
  1. TELAPREVIR [Interacting]
     Active Substance: TELAPREVIR
     Indication: HEPATITIS C
     Dosage: INT AT WEEK 4
  2. TENOFOVIR [Interacting]
     Active Substance: TENOFOVIR
     Indication: HIV INFECTION
  3. ATAZANAVIR [Suspect]
     Active Substance: ATAZANAVIR
     Indication: HIV INFECTION
     Dosage: INT AT WEEK 4

REACTIONS (3)
  - Hepatotoxicity [Not Recovered/Not Resolved]
  - Renal failure acute [Not Recovered/Not Resolved]
  - Drug interaction [Unknown]
